FAERS Safety Report 5787987-X (Version None)
Quarter: 2008Q2

REPORT INFORMATION
  Report Type: 
  Country: None (occurrence: None)
  Receive Date: 20080625
  Receipt Date: 20080321
  Transmission Date: 20081010
  Serious: Yes (Death)
  Sender: FDA-Public Use
  Company Number: T200800575

PATIENT

DRUGS (1)
  1. METHADONE HCL [Suspect]

REACTIONS (1)
  - ACCIDENTAL OVERDOSE [None]
